FAERS Safety Report 7797380-6 (Version None)
Quarter: 2011Q4

REPORT INFORMATION
  Report Type: 
  Country: None (occurrence: None)
  Receive Date: 20111003
  Receipt Date: 20110920
  Transmission Date: 20120403
  Serious: Yes (Other)
  Sender: FDA-Public Use
  Company Number: JP-2011-11568

PATIENT
  Age: 85 Year
  Sex: Male
  Weight: 60 kg

DRUGS (12)
  1. NESP (DARBEPOETIN) [Concomitant]
  2. MICARDIS [Concomitant]
  3. SODIUM ALGINATE CALCIUM GLUCONATE INJ [Concomitant]
  4. PLETAL [Suspect]
     Dosage: 100 MG MILLIGRAM(S), BID, ORAL
     Route: 048
     Dates: start: 20110425
  5. EPOGEN [Suspect]
     Indication: NEPHROGENIC ANAEMIA
     Dosage: 3000 IU, TID, INTRAVENOUS
     Route: 042
     Dates: start: 20110629
  6. LANSOPRAZOLE [Suspect]
     Dosage: 30 MG MILLIGRAM(S), QD, ORAL 15 MG MILLIGRAM(S), QD, ORAL
     Route: 048
     Dates: start: 20110907
  7. LANSOPRAZOLE [Suspect]
     Dosage: 30 MG MILLIGRAM(S), QD, ORAL 15 MG MILLIGRAM(S), QD, ORAL
     Route: 048
     Dates: end: 20110808
  8. OXAROL (MAXACALCITOL) [Concomitant]
  9. FOSRENOL (LANTHANUM CARBONATE HYDRATE) [Concomitant]
  10. AMLODIN OD (AMLODIPINE BESILATE) [Concomitant]
  11. CINAL (ASCORBIC ACID, CALCIUM PANTOTHENATE) [Concomitant]
  12. PROMAC (POLAPREZINC) [Concomitant]

REACTIONS (5)
  - GASTROINTESTINAL HAEMORRHAGE [None]
  - DUODENAL ULCER [None]
  - APLASIA PURE RED CELL [None]
  - ANTI-ERYTHROPOIETIN ANTIBODY POSITIVE [None]
  - DIZZINESS POSTURAL [None]
